FAERS Safety Report 9857561 (Version 1)
Quarter: 2014Q1

REPORT INFORMATION
  Report Type: Report from Study
  Country: JP (occurrence: JP)
  Receive Date: 20140131
  Receipt Date: 20140131
  Transmission Date: 20141002
  Serious: Yes (Other)
  Sender: FDA-Public Use
  Company Number: PHHY2014JP008912

PATIENT
  Age: 40 Year
  Sex: Male

DRUGS (43)
  1. LEPONEX / CLOZARIL [Suspect]
     Indication: SCHIZOPHRENIA, PARANOID TYPE
     Dosage: 12.5 MG, DAILY
     Route: 048
     Dates: start: 20130320
  2. LEPONEX / CLOZARIL [Suspect]
     Dosage: 25 MG, DAILY
     Route: 048
     Dates: start: 20130321
  3. LEPONEX / CLOZARIL [Suspect]
     Dosage: 50 MG, DAILY
     Route: 048
     Dates: start: 20130324
  4. LEPONEX / CLOZARIL [Suspect]
     Dosage: 75 MG, DAILY
     Route: 048
     Dates: start: 20130327
  5. LEPONEX / CLOZARIL [Suspect]
     Dosage: 100 MG, DAILY
     Route: 048
     Dates: start: 20130329
  6. LEPONEX / CLOZARIL [Suspect]
     Dosage: 125 MG, DAILY
     Route: 048
     Dates: start: 20130331, end: 20130402
  7. LEPONEX / CLOZARIL [Suspect]
     Dosage: 150 MG, DAILY
     Route: 048
     Dates: start: 20130403, end: 20130405
  8. LEPONEX / CLOZARIL [Suspect]
     Dosage: 175 MG, DAILY
     Route: 048
     Dates: start: 20130406, end: 20130408
  9. LEPONEX / CLOZARIL [Suspect]
     Dosage: 200 MG, DAILY
     Route: 048
     Dates: start: 20130409, end: 20130412
  10. LEPONEX / CLOZARIL [Suspect]
     Dosage: 225 MG, DAILY
     Route: 048
     Dates: start: 20130413, end: 20130416
  11. LEPONEX / CLOZARIL [Suspect]
     Dosage: 250 MG, DAILY
     Route: 048
     Dates: start: 20130417, end: 20130420
  12. LEPONEX / CLOZARIL [Suspect]
     Dosage: 275 MG, DAILY
     Route: 048
     Dates: start: 20130421, end: 20130423
  13. LEPONEX / CLOZARIL [Suspect]
     Dosage: 300 MG, DAILY
     Route: 048
     Dates: start: 20130424, end: 20130430
  14. LEPONEX / CLOZARIL [Suspect]
     Dosage: 325 MG, DAILY
     Route: 048
     Dates: start: 20130501, end: 20130507
  15. LEPONEX / CLOZARIL [Suspect]
     Dosage: 350 MG, DAILY
     Route: 048
     Dates: start: 20130508, end: 20130514
  16. LEPONEX / CLOZARIL [Suspect]
     Dosage: 375 MG, DAILY
     Route: 048
     Dates: start: 20130515, end: 20130521
  17. LEPONEX / CLOZARIL [Suspect]
     Dosage: 400 MG, DAILY
     Route: 048
     Dates: start: 20130522, end: 20130528
  18. LEPONEX / CLOZARIL [Suspect]
     Dosage: 425 MG, DAILY
     Route: 048
     Dates: start: 20130529, end: 20130604
  19. LEPONEX / CLOZARIL [Suspect]
     Dosage: 450 MG, DAILY
     Route: 048
     Dates: start: 20130605, end: 20130611
  20. LEPONEX / CLOZARIL [Suspect]
     Dosage: 475 MG, DAILY
     Route: 048
     Dates: start: 20130612, end: 20130618
  21. LEPONEX / CLOZARIL [Suspect]
     Dosage: 500 MG, DAILY
     Route: 048
     Dates: start: 20130619, end: 20130625
  22. LEPONEX / CLOZARIL [Suspect]
     Dosage: 525 MG, DAILY
     Route: 048
     Dates: start: 20130626, end: 20130702
  23. LEPONEX / CLOZARIL [Suspect]
     Dosage: 550 MG, DAILY
     Route: 048
     Dates: start: 20130703, end: 20130709
  24. LEPONEX / CLOZARIL [Suspect]
     Dosage: 575 MG, DAILY
     Route: 048
     Dates: start: 20130710, end: 20130716
  25. LEPONEX / CLOZARIL [Suspect]
     Dosage: 600 MG, DAILY
     Route: 048
     Dates: start: 20130717
  26. DIOVAN [Concomitant]
     Dosage: 40 MG, UNK
     Route: 048
  27. RISPERIDONE [Concomitant]
     Dosage: 9 MG, UNK
     Route: 048
     Dates: start: 20130320
  28. RISPERIDONE [Concomitant]
     Dosage: 6 MG, UNK
     Route: 048
  29. RISPERIDONE [Concomitant]
     Dosage: 3 MG, UNK
     Route: 048
     Dates: end: 20130408
  30. QUETIAPINE [Concomitant]
     Dosage: 300 MG, UNK
     Route: 048
     Dates: start: 20130320, end: 20130323
  31. SLOWHEIM [Concomitant]
     Indication: SCHIZOPHRENIA, PARANOID TYPE
     Dosage: 7.5 MG, UNK
     Route: 048
     Dates: start: 20130320
  32. BENZALIN [Concomitant]
     Indication: SCHIZOPHRENIA, PARANOID TYPE
     Dosage: 10 MG, UNK
     Dates: start: 20130320
  33. WYPAX [Concomitant]
     Indication: SCHIZOPHRENIA, PARANOID TYPE
     Dosage: 3 MG, UNK
     Route: 048
     Dates: start: 20130320
  34. WYPAX [Concomitant]
     Dosage: 1.5 MG, UNK
     Route: 048
  35. WYPAX [Concomitant]
     Dosage: 1 MG, UNK
     Route: 048
  36. WYPAX [Concomitant]
     Dosage: 0.5 MG, UNK
     Route: 048
     Dates: start: 20130419
  37. AMLODIPINE [Concomitant]
     Dosage: 2.5 MG, UNK
     Route: 048
     Dates: start: 20130424
  38. MAGMITT [Concomitant]
     Indication: SCHIZOPHRENIA, PARANOID TYPE
     Dosage: 1250 MG, UNK
     Route: 048
  39. MAGMITT [Concomitant]
     Dosage: 1500 MG, UNK
     Route: 048
  40. ZOPICLONE [Concomitant]
     Indication: SCHIZOPHRENIA, PARANOID TYPE
     Dosage: 7.5 MG, UNK
     Route: 048
     Dates: start: 20130621
  41. SODIUM VALPROATE [Concomitant]
     Indication: SCHIZOPHRENIA, PARANOID TYPE
     Dosage: 200 MG, UNK
     Route: 048
     Dates: start: 20130809
  42. SODIUM VALPROATE [Concomitant]
     Dosage: 400 MG, UNK
     Route: 048
  43. SENNOSIDE [Concomitant]
     Indication: SCHIZOPHRENIA, PARANOID TYPE
     Dosage: 12 MG, UNK
     Route: 048
     Dates: start: 20130801, end: 20130807

REACTIONS (3)
  - Delusion [Unknown]
  - Foreign body [Unknown]
  - Suicide attempt [Recovering/Resolving]
